FAERS Safety Report 4828114-2 (Version None)
Quarter: 2005Q4

REPORT INFORMATION
  Report Type: 
  Country: None (occurrence: None)
  Receive Date: 20051110
  Receipt Date: 20051102
  Transmission Date: 20060501
  Serious: Yes (Hospitalization)
  Sender: FDA-Public Use
  Company Number: 2005142725

PATIENT
  Age: 78 Year

DRUGS (5)
  1. ALDACTONE [Suspect]
     Indication: CARDIAC FAILURE
     Dosage: ORAL
     Route: 048
     Dates: start: 20050927, end: 20051005
  2. LASIX [Concomitant]
  3. DIART (AZOSEMIDE) [Concomitant]
  4. LANIRAPID (METILDIGOXIN) [Concomitant]
  5. AMIODARONE HCL [Concomitant]

REACTIONS (1)
  - WHITE BLOOD CELL COUNT DECREASED [None]
